FAERS Safety Report 5100765-X (Version None)
Quarter: 2006Q3

REPORT INFORMATION
  Report Type: 
  Country: None (occurrence: None)
  Receive Date: 20060906
  Receipt Date: 20060821
  Transmission Date: 20061208
  Serious: Yes (Other)
  Sender: FDA-Public Use
  Company Number: 8018561

PATIENT
  Sex: Female

DRUGS (5)
  1. KEPPRA [Suspect]
     Indication: EPILEPSY
     Dosage: 1000 MG 1/D PO
     Route: 048
     Dates: start: 20010901
  2. KEPPRA [Suspect]
     Indication: EPILEPSY
     Dosage: 250 MG 2/D PO
     Route: 048
  3. KEPPRA [Suspect]
     Indication: EPILEPSY
  4. EPILIM [Concomitant]
  5. PHENYTOIN [Concomitant]

REACTIONS (5)
  - BLEEDING TIME PROLONGED [None]
  - EPILEPSY [None]
  - NEUTROPENIA [None]
  - RASH MACULAR [None]
  - ULCER HAEMORRHAGE [None]
